FAERS Safety Report 4381267-5 (Version None)
Quarter: 2004Q2

REPORT INFORMATION
  Report Type: 
  Country: None (occurrence: None)
  Receive Date: 20040617
  Receipt Date: 20040617
  Transmission Date: 20050107
  Serious: Yes (Hospitalization, Other)
  Sender: FDA-Public Use
  Company Number: None

PATIENT
  Age: 52 Year
  Sex: Female

DRUGS (1)
  1. IFOSFAMIDE [Suspect]

REACTIONS (4)
  - AGITATION [None]
  - CONFUSIONAL STATE [None]
  - FLIGHT OF IDEAS [None]
  - THINKING ABNORMAL [None]
